FAERS Safety Report 17665181 (Version 1)
Quarter: 2020Q2

REPORT INFORMATION
  Report Type: Spontaneous
  Country: US (occurrence: US)
  Receive Date: 20200414
  Receipt Date: 20200414
  Transmission Date: 20200713
  Serious: Yes (Other)
  Sender: FDA-Public Use
  Company Number: US-DRREDDYS-USA/USA/20/0121759

PATIENT
  Age: 69 Year
  Sex: Female
  Weight: 57.6 kg

DRUGS (1)
  1. NITROGLYCERIN. [Suspect]
     Active Substance: NITROGLYCERIN
     Indication: PRINZMETAL ANGINA
     Route: 060
     Dates: start: 20200320

REACTIONS (3)
  - Paraesthesia oral [Unknown]
  - Drug ineffective [Unknown]
  - Product quality issue [Unknown]
